FAERS Safety Report 4359389-4 (Version None)
Quarter: 2004Q2

REPORT INFORMATION
  Report Type: 
  Country: None (occurrence: None)
  Receive Date: 20040512
  Receipt Date: 20040430
  Transmission Date: 20050107
  Serious: Yes (Death)
  Sender: FDA-Public Use
  Company Number: HQWYE661130APR04

PATIENT
  Age: 19 Year
  Sex: Male

DRUGS (8)
  1. EFFEXOR [Suspect]
     Indication: ATTENTION DEFICIT/HYPERACTIVITY DISORDER
     Dosage: SEE IMAGE
     Route: 048
     Dates: start: 20030101, end: 20040114
  2. EFFEXOR [Suspect]
     Indication: DEPRESSION
     Dosage: SEE IMAGE
     Route: 048
     Dates: start: 20030101, end: 20040114
  3. EFFEXOR [Suspect]
     Indication: ATTENTION DEFICIT/HYPERACTIVITY DISORDER
     Dosage: SEE IMAGE
     Route: 048
     Dates: start: 20040114, end: 20040116
  4. EFFEXOR [Suspect]
     Indication: DEPRESSION
     Dosage: SEE IMAGE
     Route: 048
     Dates: start: 20040114, end: 20040116
  5. CODEINE (CODEINE,) [Suspect]
  6. HEROIN (DIAMORPHINE,) [Suspect]
     Dates: start: 20040115, end: 20040115
  7. MARIJUANA (CANNABIS,) [Suspect]
     Dates: start: 20030101, end: 20040116
  8. MORPHINE [Suspect]

REACTIONS (4)
  - CARDIO-RESPIRATORY ARREST [None]
  - DRUG ABUSER [None]
  - DRUG INTERACTION [None]
  - DRUG TOXICITY [None]
